FAERS Safety Report 10151517 (Version 3)
Quarter: 2014Q3

REPORT INFORMATION
  Report Type: Report from Study
  Country: MX (occurrence: MX)
  Receive Date: 20140503
  Receipt Date: 20140825
  Transmission Date: 20150326
  Serious: Yes (Other)
  Sender: FDA-Public Use
  Company Number: PHHY2014MX050921

PATIENT
  Age: 79 Year
  Sex: Female
  Weight: 56 kg

DRUGS (15)
  1. ONBREZ [Suspect]
     Active Substance: INDACATEROL
     Indication: COUGH
     Dosage: UNK, PRN
  2. GALVUS MET [Suspect]
     Active Substance: METFORMIN HYDROCHLORIDE\VILDAGLIPTIN
     Indication: DIABETES MELLITUS
     Dosage: 1 DF (850 MG MET/ 50 MG VILDA), DAILY
     Route: 048
     Dates: start: 201211
  3. AMARYL [Concomitant]
     Active Substance: GLIMEPIRIDE
     Dosage: 850 MG, UNK
  4. PROPAFENONE. [Concomitant]
     Active Substance: PROPAFENONE
     Indication: ARRHYTHMIA
     Dosage: UNK
  5. NUVELLE [Concomitant]
     Indication: DIABETES MELLITUS
     Dosage: UNK
  6. ONBREZ [Suspect]
     Active Substance: INDACATEROL
     Indication: ASPHYXIA
  7. GALVUS MET [Suspect]
     Active Substance: METFORMIN HYDROCHLORIDE\VILDAGLIPTIN
     Dosage: 1 DF (850 MG MET/ 50 MG VILDA), DAILY
     Route: 048
  8. ONBREZ [Suspect]
     Active Substance: INDACATEROL
     Indication: OFF LABEL USE
  9. GAVINDO [Concomitant]
     Dosage: UNK
  10. GALVUS MET [Suspect]
     Active Substance: METFORMIN HYDROCHLORIDE\VILDAGLIPTIN
     Dosage: 1.5 DF, (850 MG MET/ 50 MG VILDA), DAILY
     Route: 048
  11. ONBREZ [Suspect]
     Active Substance: INDACATEROL
     Indication: ASTHMA
     Dosage: 150 UG, DAILY
     Dates: start: 2011
  12. GALVUS MET [Suspect]
     Active Substance: METFORMIN HYDROCHLORIDE\VILDAGLIPTIN
     Indication: BLOOD GLUCOSE ABNORMAL
     Dosage: 2 DF, (850 MG MET/ 50 MG VILDA), DAILY
     Route: 048
  13. OMEPRAZOLE. [Concomitant]
     Active Substance: OMEPRAZOLE
     Indication: DYSPEPSIA
     Dosage: UNK
  14. NEUROBION [Concomitant]
     Active Substance: CYANOCOBALAMIN\PYRIDOXINE\THIAMINE
     Indication: ARTHRALGIA
     Dosage: UNK
  15. MICARDIS PLUS [Concomitant]
     Active Substance: HYDROCHLOROTHIAZIDE\TELMISARTAN
     Indication: HYPERTENSION
     Dosage: 1 DF, DAILY

REACTIONS (18)
  - Arterial disorder [Recovered/Resolved]
  - Haemorrhage [Recovered/Resolved]
  - Fall [Unknown]
  - Discomfort [Unknown]
  - Wrong technique in drug usage process [Recovered/Resolved]
  - Dislocation of vertebra [Unknown]
  - Cataract [Unknown]
  - Fear [Unknown]
  - Skin discolouration [Not Recovered/Not Resolved]
  - Facial bones fracture [Recovered/Resolved]
  - Blood glucose fluctuation [Recovered/Resolved]
  - Cough [Unknown]
  - Osteoporosis [Not Recovered/Not Resolved]
  - Open angle glaucoma [Unknown]
  - Blood glucose increased [Recovered/Resolved]
  - Contusion [Not Recovered/Not Resolved]
  - Drug prescribing error [Recovered/Resolved]
  - Procedural complication [Recovered/Resolved]

NARRATIVE: CASE EVENT DATE: 20121130
